FAERS Safety Report 13567461 (Version 1)
Quarter: 2017Q2

REPORT INFORMATION
  Report Type: Spontaneous
  Country: US (occurrence: US)
  Receive Date: 20170519
  Receipt Date: 20170519
  Transmission Date: 20170830
  Serious: Yes (Other)
  Sender: FDA-Public Use
  Company Number: None

PATIENT
  Age: 80 Year
  Sex: Female

DRUGS (12)
  1. OXYCODONE [Concomitant]
     Active Substance: OXYCODONE
  2. LYRICA [Concomitant]
     Active Substance: PREGABALIN
  3. LISINOPRIL. [Concomitant]
     Active Substance: LISINOPRIL
  4. BIT B12 [Concomitant]
  5. AMOXICILLIN. [Concomitant]
     Active Substance: AMOXICILLIN
  6. CALDIUM D [Concomitant]
  7. FUROSEMIDE. [Concomitant]
     Active Substance: FUROSEMIDE
  8. GLIPIZIDE. [Concomitant]
     Active Substance: GLIPIZIDE
  9. IBRANCE [Suspect]
     Active Substance: PALBOCICLIB
     Indication: BREAST CANCER
     Dosage: 100MG DAYS 1-21 THEN OFF 7 DAYS QD PO
     Route: 048
     Dates: start: 201609
  10. PANTOPRAZOLE [Concomitant]
     Active Substance: PANTOPRAZOLE
  11. VITAMIN D [Concomitant]
     Active Substance: CHOLECALCIFEROL
  12. VERAPAMIL [Concomitant]
     Active Substance: VERAPAMIL HYDROCHLORIDE

REACTIONS (2)
  - Myocardial infarction [None]
  - Cerebrovascular accident [None]

NARRATIVE: CASE EVENT DATE: 20170512
